FAERS Safety Report 20222534 (Version 1)
Quarter: 2021Q4

REPORT INFORMATION
  Report Type: Spontaneous
  Country: DE (occurrence: DE)
  Receive Date: 20211223
  Receipt Date: 20211223
  Transmission Date: 20220303
  Serious: Yes (Hospitalization)
  Sender: FDA-Public Use
  Company Number: DE-ADRED-07361-01

PATIENT
  Age: 69 Year
  Sex: Female
  Weight: 67 kg

DRUGS (11)
  1. ALLOPURINOL [Suspect]
     Active Substance: ALLOPURINOL
     Indication: Product used for unknown indication
     Dosage: 100 MG, NACH SCHEMA, TABLETTEN (100 MG, BY SCHEME, TABLETTEN)
     Route: 048
  2. HYDROXYUREA [Suspect]
     Active Substance: HYDROXYUREA
     Indication: Product used for unknown indication
     Dosage: 500 MG, NACH SCHEMA, KAPSELN (500 MG, BY SCHEME, CAPSULES)
     Route: 048
  3. CANDESARTAN [Suspect]
     Active Substance: CANDESARTAN
     Indication: Product used for unknown indication
     Route: 048
  4. PREDNISOLONE [Suspect]
     Active Substance: PREDNISOLONE
     Indication: Product used for unknown indication
     Route: 048
  5. Colecalciferol W/Calcium carbonate [Concomitant]
     Indication: Product used for unknown indication
     Dosage: 1250|0.01 MG
     Route: 048
  6. LEVOTHYROXINE SODIUM [Concomitant]
     Active Substance: LEVOTHYROXINE SODIUM
     Indication: Product used for unknown indication
     Route: 048
  7. LEVOTHYROXINE SODIUM [Concomitant]
     Active Substance: LEVOTHYROXINE SODIUM
     Dosage: 100 MICROG, NACH SCHEMA, TABLETTEN
  8. ASPIRIN [Concomitant]
     Active Substance: ASPIRIN
     Indication: Product used for unknown indication
     Route: 048
  9. POLYETHYLENE GLYCOLS [Concomitant]
     Active Substance: POLYETHYLENE GLYCOLS
     Indication: Product used for unknown indication
     Dosage: 52.5|0.185|0.715|1.4 G
     Route: 048
  10. CHOLECALCIFEROL [Concomitant]
     Active Substance: CHOLECALCIFEROL
     Indication: Product used for unknown indication
     Route: 048
  11. HERBALS\PLANTAGO OVATA SEED [Concomitant]
     Active Substance: HERBALS\PLANTAGO OVATA SEED
     Indication: Product used for unknown indication
     Route: 048

REACTIONS (7)
  - Oliguria [Unknown]
  - Pain [Unknown]
  - General physical health deterioration [Unknown]
  - Decreased appetite [Unknown]
  - Dysuria [Unknown]
  - Headache [Unknown]
  - Nausea [Unknown]
